FAERS Safety Report 7090997-6 (Version None)
Quarter: 2010Q4

REPORT INFORMATION
  Report Type: 
  Country: None (occurrence: None)
  Receive Date: 20101109
  Receipt Date: 20101027
  Transmission Date: 20110411
  Serious: Yes (Death)
  Sender: FDA-Public Use
  Company Number: CA-ACTELION-A-US2010-40466

PATIENT

DRUGS (13)
  1. BOSENTAN TABLET 125 MG CD [Suspect]
     Indication: PULMONARY ARTERIAL HYPERTENSION
     Dosage: 125 MG, BID
     Route: 048
     Dates: start: 20090911, end: 20101005
  2. BOSENTAN TABLET 125 MG CD [Suspect]
     Dosage: 62.5 MG, BID
     Route: 048
     Dates: start: 20090811, end: 20090911
  3. REMODULIN [Concomitant]
  4. LASIX [Concomitant]
  5. ZAROXOLYN [Concomitant]
  6. ALDACTAZIDE [Concomitant]
  7. K-DUR [Concomitant]
  8. ALLOPURINOL [Concomitant]
  9. ATROVENT [Concomitant]
  10. ASPIRIN [Concomitant]
  11. CRESTOR [Concomitant]
  12. NOVOMIX [Concomitant]
  13. PRILOSEC [Concomitant]

REACTIONS (3)
  - DISEASE PROGRESSION [None]
  - PULMONARY ARTERIAL HYPERTENSION [None]
  - RIGHT VENTRICULAR FAILURE [None]
